FAERS Safety Report 8372755-5 (Version None)
Quarter: 2012Q2

REPORT INFORMATION
  Report Type: 
  Country: None (occurrence: None)
  Receive Date: 20120521
  Receipt Date: 20120514
  Transmission Date: 20120825
  Serious: Yes (Death)
  Sender: FDA-Public Use
  Company Number: IT-ASTELLAS-2012EU003560

PATIENT
  Age: 37 Year
  Sex: Female

DRUGS (7)
  1. TACROLIMUS [Suspect]
     Indication: LUNG TRANSPLANT
     Dosage: UNK
     Route: 065
  2. AZATHIOPRINE [Concomitant]
     Indication: LUNG TRANSPLANT
     Dosage: 2 MG/KG, UNKNOWN/D
     Route: 065
  3. SOLU-MEDROL [Concomitant]
     Indication: LUNG TRANSPLANT REJECTION
     Dosage: 1 G, OTHER
     Route: 042
  4. SOLU-MEDROL [Concomitant]
     Dosage: 500 MG, OTHER
     Route: 042
  5. CORTICOSTEROIDS [Concomitant]
     Dosage: 20 MG/DAY, UNKNOWN/D
     Route: 065
  6. NEORAL [Concomitant]
     Indication: LUNG TRANSPLANT
     Dosage: UNK
     Route: 065
  7. CORTICOSTEROIDS [Concomitant]
     Indication: LUNG TRANSPLANT
     Dosage: 150 MG, TID
     Route: 065

REACTIONS (2)
  - SCEDOSPORIUM INFECTION [None]
  - OFF LABEL USE [None]
